FAERS Safety Report 9857226 (Version 1)
Quarter: 2014Q1

REPORT INFORMATION
  Report Type: Spontaneous
  Country: US (occurrence: US)
  Receive Date: 20140130
  Receipt Date: 20140130
  Transmission Date: 20141002
  Serious: No
  Sender: FDA-Public Use
  Company Number: US-BAXTER-2014BAX004449

PATIENT
  Age: 57 Year
  Sex: Female
  Weight: 70.37 kg

DRUGS (4)
  1. 0.9% SODIUM CHLORIDE INJECTION [Suspect]
     Indication: CATHETER MANAGEMENT
     Route: 061
     Dates: start: 20140124
  2. 0.9% SODIUM CHLORIDE INJECTION [Suspect]
     Indication: ACCIDENTAL EXPOSURE TO PRODUCT
  3. HERCEPTIN [Concomitant]
     Indication: BREAST CANCER
     Route: 042
  4. HERCEPTIN [Concomitant]
     Indication: CHEMOTHERAPY

REACTIONS (2)
  - Accidental exposure to product [Unknown]
  - No adverse event [Recovered/Resolved]
